FAERS Safety Report 5139957-2 (Version None)
Quarter: 2006Q4

REPORT INFORMATION
  Report Type: 
  Country: None (occurrence: None)
  Receive Date: 20061031
  Receipt Date: 20061025
  Transmission Date: 20070319
  Serious: Yes (Other)
  Sender: FDA-Public Use
  Company Number: DE-BAYER-200611411BVD

PATIENT
  Sex: Male
  Weight: 94 kg

DRUGS (6)
  1. ASPIRIN [Suspect]
     Indication: ISCHAEMIC HEART DISEASE PROPHYLAXIS
     Dosage: TOTAL DAILY DOSE: 100 MG
     Route: 048
  2. LEVOTHYROXINE SODIUM [Suspect]
     Indication: HYPOTHYROIDISM
     Route: 048
  3. SIMVASTATIN STADA [Suspect]
     Indication: HYPERCHOLESTEROLAEMIA
     Dosage: AS USED: 20 MG
     Route: 048
  4. METFORMIN STADA [Suspect]
     Indication: DIABETES MELLITUS NON-INSULIN-DEPENDENT
     Route: 048
  5. ISDN STADA [Suspect]
     Indication: HYPERTENSION
     Route: 048
  6. AMLOLICH [Suspect]
     Indication: HYPERTENSION
     Route: 048

REACTIONS (1)
  - PSORIASIS [None]
